FAERS Safety Report 10335854 (Version 2)
Quarter: 2014Q3

REPORT INFORMATION
  Report Type: Spontaneous
  Country: US (occurrence: US)
  Receive Date: 20140723
  Receipt Date: 20140723
  Transmission Date: 20150326
  Serious: Yes (Life-Threatening, Hospitalization, Disabling, Other)
  Sender: FDA-Public Use
  Company Number: US-009507513-2009SP043060

PATIENT
  Sex: Female
  Weight: 63.96 kg

DRUGS (6)
  1. NUVARING [Suspect]
     Active Substance: ETHINYL ESTRADIOL\ETONOGESTREL
     Indication: ACNE
     Dosage: UNK
     Route: 067
     Dates: start: 20060411, end: 200607
  2. LEXAPRO [Concomitant]
     Active Substance: ESCITALOPRAM OXALATE
     Indication: MEDICAL DIET
  3. NUVARING [Suspect]
     Active Substance: ETHINYL ESTRADIOL\ETONOGESTREL
     Indication: CONTRACEPTION
     Dosage: UNK
     Route: 067
     Dates: start: 200510, end: 200602
  4. PROZAC [Suspect]
     Active Substance: FLUOXETINE HYDROCHLORIDE
     Indication: DEPRESSION
     Dosage: UNK
     Dates: start: 2006
  5. TERFENADINE [Concomitant]
     Active Substance: TERFENADINE
     Indication: PRODUCT USED FOR UNKNOWN INDICATION
  6. PHENTERMINE [Concomitant]
     Active Substance: PHENTERMINE
     Indication: DECREASED APPETITE
     Dates: start: 200505, end: 200507

REACTIONS (34)
  - Suicidal ideation [Unknown]
  - Fatigue [Not Recovered/Not Resolved]
  - Cardiac murmur [Unknown]
  - Musculoskeletal pain [Unknown]
  - Deep vein thrombosis [Recovered/Resolved with Sequelae]
  - Asthenia [Not Recovered/Not Resolved]
  - Dyspnoea [Not Recovered/Not Resolved]
  - Depression [Not Recovered/Not Resolved]
  - Vomiting [Unknown]
  - Postoperative wound infection [Unknown]
  - Headache [Unknown]
  - Menorrhagia [Unknown]
  - Iliac vein occlusion [Unknown]
  - Anticoagulation drug level below therapeutic [Unknown]
  - May-Thurner syndrome [Unknown]
  - Leukocytosis [Unknown]
  - Urinary tract infection [Recovering/Resolving]
  - Off label use [Unknown]
  - Vena cava filter removal [Unknown]
  - Urinary tract infection [Recovered/Resolved]
  - Venous stent insertion [Unknown]
  - Hyperventilation [Unknown]
  - Medical device discomfort [Unknown]
  - Nausea [Unknown]
  - Musculoskeletal discomfort [Unknown]
  - Arthralgia [Unknown]
  - Vena cava filter insertion [Recovered/Resolved]
  - Dizziness [Unknown]
  - Adnexa uteri cyst [Unknown]
  - Blood disorder [Unknown]
  - Haematuria [Recovered/Resolved]
  - Anger [Unknown]
  - Oropharyngeal pain [Unknown]
  - Night sweats [Recovered/Resolved]

NARRATIVE: CASE EVENT DATE: 2005
